FAERS Safety Report 10758347 (Version 1)
Quarter: 2015Q1

REPORT INFORMATION
  Report Type: Report from Study
  Country: AT (occurrence: AT)
  Receive Date: 20150203
  Receipt Date: 20150203
  Transmission Date: 20150721
  Serious: Yes (Death)
  Sender: FDA-Public Use
  Company Number: AT-ASTELLAS-2015US003062

PATIENT

DRUGS (2)
  1. MICAFUNGIN [Suspect]
     Active Substance: MICAFUNGIN
     Indication: ANTIFUNGAL PROPHYLAXIS
     Dosage: 50 MG, ONCE DAILY, 1-HR INFUSION
     Route: 042
  2. ANTINEOPLASTIC AGENTS [Concomitant]
     Active Substance: UNSPECIFIED INGREDIENT
     Indication: ACUTE LEUKAEMIA
     Dosage: UNK UNK, UNKNOWN FREQ.
     Route: 065

REACTIONS (1)
  - Drug ineffective [Fatal]
